FAERS Safety Report 25137129 (Version 2)
Quarter: 2025Q2

REPORT INFORMATION
  Report Type: Spontaneous
  Country: CN (occurrence: CN)
  Receive Date: 20250328
  Receipt Date: 20250402
  Transmission Date: 20250717
  Serious: Yes (Life-Threatening, Other)
  Sender: ABBVIE
  Company Number: CN-PFIZER INC-PV202500035151

PATIENT
  Age: 36 Year
  Sex: Female

DRUGS (10)
  1. AVIBACTAM SODIUM\CEFTAZIDIME [Suspect]
     Active Substance: AVIBACTAM SODIUM\CEFTAZIDIME
     Indication: Anti-infective therapy
     Route: 042
     Dates: start: 20250306
  2. VANCOCIN [Concomitant]
     Active Substance: VANCOMYCIN HYDROCHLORIDE
     Indication: Product used for unknown indication
     Dates: start: 20250227
  3. ERAVACYCLINE [Concomitant]
     Active Substance: ERAVACYCLINE
     Indication: Product used for unknown indication
  4. TYGACIL [Suspect]
     Active Substance: TIGECYCLINE
     Indication: Anti-infective therapy
     Route: 065
  5. INATICABTAGENE AUTOLEUCEL [Concomitant]
     Indication: Product used for unknown indication
     Dates: start: 20250304
  6. MEROPENEM [Concomitant]
     Active Substance: MEROPENEM
     Indication: Product used for unknown indication
     Dates: start: 20250224
  7. SOLU-MEDROL [Suspect]
     Active Substance: METHYLPREDNISOLONE SODIUM SUCCINATE
     Indication: Inflammation
     Route: 065
     Dates: start: 202503, end: 202503
  8. SOLU-MEDROL [Suspect]
     Active Substance: METHYLPREDNISOLONE SODIUM SUCCINATE
     Indication: Inflammation
     Route: 065
     Dates: start: 202503, end: 202503
  9. SOLU-MEDROL [Suspect]
     Active Substance: METHYLPREDNISOLONE SODIUM SUCCINATE
     Indication: Inflammation
     Route: 065
     Dates: start: 20250310
  10. CASPOFUNGIN [Concomitant]
     Active Substance: CASPOFUNGIN
     Indication: Product used for unknown indication

REACTIONS (14)
  - Coma [Unknown]
  - Somnolence [Unknown]
  - Myocardial ischaemia [Unknown]
  - Electrolyte imbalance [Unknown]
  - Diarrhoea [Unknown]
  - Cerebral infarction [Unknown]
  - Gastrointestinal haemorrhage [Unknown]
  - Craniocerebral injury [Unknown]
  - Platelet count decreased [Unknown]
  - B-cell type acute leukaemia [Unknown]
  - Infection [Unknown]
  - Brain herniation [Unknown]
  - Cerebral haemorrhage [Unknown]
  - Systemic inflammatory response syndrome [Unknown]

NARRATIVE: CASE EVENT DATE: 20250305
